FAERS Safety Report 17478201 (Version 3)
Quarter: 2020Q2

REPORT INFORMATION
  Report Type: Spontaneous
  Country: DE (occurrence: DE)
  Receive Date: 20200229
  Receipt Date: 20200615
  Transmission Date: 20200713
  Serious: Yes (Hospitalization, Other)
  Sender: FDA-Public Use
  Company Number: DE-ACCORD-169899

PATIENT
  Age: 22 Year
  Sex: Female
  Weight: 76.6 kg

DRUGS (7)
  1. LEVETIRACETAM. [Suspect]
     Active Substance: LEVETIRACETAM
     Indication: EPILEPSY
     Route: 065
     Dates: start: 20191220
  2. LEVETIRACETAM. [Suspect]
     Active Substance: LEVETIRACETAM
     Indication: EPILEPSY
     Dosage: 25 MG
     Route: 065
     Dates: start: 20191229
  3. LEVETIRACETAM. [Suspect]
     Active Substance: LEVETIRACETAM
     Indication: EPILEPSY
     Dosage: 25 MG
     Route: 065
     Dates: start: 20191220
  4. GILENYA [Suspect]
     Active Substance: FINGOLIMOD HYDROCHLORIDE
     Indication: MULTIPLE SCLEROSIS
     Route: 048
     Dates: start: 20170621
  5. BRIVARACETAM [Concomitant]
     Active Substance: BRIVARACETAM
     Indication: SEIZURE
     Dosage: 25 MG, QD
     Route: 048
     Dates: start: 20200121
  6. LEVETIRACETAM. [Suspect]
     Active Substance: LEVETIRACETAM
     Indication: EPILEPSY
     Dosage: 25 MG
     Route: 065
     Dates: start: 20191220, end: 20191229
  7. INTERFERON BETA NOS [Suspect]
     Active Substance: INTERFERON BETA
     Indication: MULTIPLE SCLEROSIS
     Dosage: 30 UG
     Route: 030
     Dates: start: 20170621

REACTIONS (6)
  - Multiple sclerosis [Unknown]
  - Dizziness [Recovered/Resolved]
  - Multiple sclerosis relapse [Recovered/Resolved]
  - Pain in extremity [Recovered/Resolved]
  - JC polyomavirus test [Recovered/Resolved with Sequelae]
  - Condition aggravated [Unknown]

NARRATIVE: CASE EVENT DATE: 20191226
